FAERS Safety Report 9826070 (Version 1)
Quarter: 2014Q1

REPORT INFORMATION
  Report Type: Spontaneous
  Country: US (occurrence: None)
  Receive Date: 20140116
  Receipt Date: 20140116
  Transmission Date: 20141002
  Serious: Yes (Disabling)
  Sender: FDA-Public Use
  Company Number: None

PATIENT
  Age: 66 Year
  Sex: Male
  Weight: 88.45 kg

DRUGS (2)
  1. CIPROFLOXACIN HCL [Suspect]
     Indication: DIVERTICULITIS
     Dosage: 1 TABLET
     Route: 048
     Dates: start: 20140107, end: 20140110
  2. METRONIDAZOLE 500MG [Suspect]
     Indication: DIVERTICULITIS
     Dosage: 1 TABLET
     Route: 048
     Dates: start: 20140107, end: 20140110

REACTIONS (2)
  - Abdominal pain upper [None]
  - Bedridden [None]
